FAERS Safety Report 19529997 (Version 1)
Quarter: 2021Q3

REPORT INFORMATION
  Report Type: Spontaneous
  Country: ES (occurrence: ES)
  Receive Date: 20210713
  Receipt Date: 20210713
  Transmission Date: 20211014
  Serious: Yes (Other)
  Sender: FDA-Public Use
  Company Number: NVSC2021ES148669

PATIENT
  Age: 64 Year
  Sex: Female
  Weight: 79 kg

DRUGS (2)
  1. NPLATE [Suspect]
     Active Substance: ROMIPLOSTIM
     Indication: IMMUNE THROMBOCYTOPENIA
     Dosage: UNK
     Route: 065
     Dates: start: 202103, end: 20210527
  2. REVOLADE [Suspect]
     Active Substance: ELTROMBOPAG OLAMINE
     Indication: IMMUNE THROMBOCYTOPENIA
     Dosage: 75 MG, Q24H
     Route: 048
     Dates: start: 20130315, end: 20210301

REACTIONS (1)
  - Myelofibrosis [Recovering/Resolving]

NARRATIVE: CASE EVENT DATE: 20210511
